FAERS Safety Report 24360350 (Version 6)
Quarter: 2025Q1

REPORT INFORMATION
  Report Type: Report from Study
  Country: US (occurrence: US)
  Receive Date: 20240925
  Receipt Date: 20250313
  Transmission Date: 20250408
  Serious: Yes (Other)
  Sender: MALLINCKRODT
  Company Number: US-MALLINCKRODT-MNK202405141

PATIENT
  Sex: Male

DRUGS (11)
  1. CORTICOTROPIN [Suspect]
     Active Substance: CORTICOTROPIN
     Indication: Polymyositis
     Dosage: UNKNOWN
  2. CORTICOTROPIN [Suspect]
     Active Substance: CORTICOTROPIN
  3. CORTICOTROPIN [Suspect]
     Active Substance: CORTICOTROPIN
  4. CORTICOTROPIN [Suspect]
     Active Substance: CORTICOTROPIN
  5. CORTICOTROPIN [Suspect]
     Active Substance: CORTICOTROPIN
  6. CORTICOTROPIN [Suspect]
     Active Substance: CORTICOTROPIN
  7. CORTICOTROPIN [Suspect]
     Active Substance: CORTICOTROPIN
  8. CORTICOTROPIN [Suspect]
     Active Substance: CORTICOTROPIN
     Dates: start: 202501
  9. METHOTREXATE [Concomitant]
     Active Substance: METHOTREXATE
  10. RITUXAN [Concomitant]
     Active Substance: RITUXIMAB
     Dates: start: 20240905
  11. FOLIC ACID [Concomitant]
     Active Substance: FOLIC ACID

REACTIONS (6)
  - Diabetes mellitus [Unknown]
  - Sensitivity to weather change [Unknown]
  - Weight increased [Unknown]
  - Hunger [Not Recovered/Not Resolved]
  - Asthenia [Recovered/Resolved]
  - Muscular weakness [Not Recovered/Not Resolved]
